FAERS Safety Report 8379307-1 (Version None)
Quarter: 2012Q2

REPORT INFORMATION
  Report Type: 
  Country: None (occurrence: None)
  Receive Date: 20120523
  Receipt Date: 20120516
  Transmission Date: 20120825
  Serious: Yes (Other)
  Sender: FDA-Public Use
  Company Number: PHHY2012DE042502

PATIENT
  Age: 66 Year
  Sex: Female

DRUGS (2)
  1. ESTRADERM [Suspect]
     Indication: HORMONE REPLACEMENT THERAPY
     Dosage: 1 DF, PER WEEK
     Route: 062
     Dates: start: 20070101
  2. MARCUMAR [Concomitant]
     Indication: ATRIAL FIBRILLATION
     Dosage: UNK
     Route: 048

REACTIONS (4)
  - NASOPHARYNGITIS [None]
  - ARTHROPATHY [None]
  - INAPPROPRIATE SCHEDULE OF DRUG ADMINISTRATION [None]
  - CEREBROVASCULAR ACCIDENT [None]
